FAERS Safety Report 4888377-4 (Version None)
Quarter: 2006Q1

REPORT INFORMATION
  Report Type: 
  Country: None (occurrence: None)
  Receive Date: 20060118
  Receipt Date: 20060105
  Transmission Date: 20060701
  Serious: Yes (Hospitalization)
  Sender: FDA-Public Use
  Company Number: 220917

PATIENT
  Age: 64 Year
  Sex: Female
  Weight: 65 kg

DRUGS (5)
  1. MABTHERA (RITUXIMAB) CONC FOR SOLUTION FOR INFUSION [Suspect]
     Indication: NON-HODGKIN'S LYMPHOMA
     Dosage: 618.75 MG, INTRAVENOUS
     Route: 042
     Dates: start: 20051205
  2. PERFALGAN (ACETAMINOPHEN) [Concomitant]
  3. SOLU-MEDROL [Concomitant]
  4. POLARAMINE [Concomitant]
  5. AERIUS (DESLORATADINE) [Concomitant]

REACTIONS (9)
  - ANAPHYLACTOID REACTION [None]
  - BACK PAIN [None]
  - BURNING SENSATION [None]
  - DYSPEPSIA [None]
  - INFUSION RELATED REACTION [None]
  - NASOPHARYNGEAL DISORDER [None]
  - PAIN IN JAW [None]
  - PARAESTHESIA [None]
  - PRURITUS [None]
